FAERS Safety Report 5820201-5 (Version None)
Quarter: 2008Q3

REPORT INFORMATION
  Report Type: 
  Country: None (occurrence: None)
  Receive Date: 20080724
  Receipt Date: 20080718
  Transmission Date: 20090109
  Serious: Yes (Hospitalization)
  Sender: FDA-Public Use
  Company Number: PHHY2008FR14795

PATIENT
  Sex: Female

DRUGS (3)
  1. VALSARTAN AND HYDROCHLOROTHIAZIDE [Suspect]
     Indication: HYPERTENSION
     Dosage: 80 MG VALSARTAN/12.5 MG HYDROCHLOROTHIAZIDE (1 DF, 1 IN 1 D)
     Route: 048
     Dates: start: 20050101, end: 20080613
  2. KARDEGIC [Concomitant]
     Dosage: 160 MG, QD
     Dates: start: 20050101
  3. HYPERIUM [Concomitant]
     Dosage: 1 MG, UNK

REACTIONS (2)
  - FALL [None]
  - HYPOKALAEMIA [None]
